FAERS Safety Report 11207360 (Version 1)
Quarter: 2015Q2

REPORT INFORMATION
  Report Type: Spontaneous
  Country: BR (occurrence: BR)
  Receive Date: 20150622
  Receipt Date: 20150622
  Transmission Date: 20150821
  Serious: Yes (Other)
  Sender: FDA-Public Use
  Company Number: BR-FRESENIUS KABI-FK201502918

PATIENT
  Age: 49 Year
  Sex: Female
  Weight: 150 kg

DRUGS (11)
  1. LIPOVENOES MCT 20% [Suspect]
     Active Substance: EGG PHOSPHOLIPIDS\GLYCERIN\SOYBEAN OIL
     Indication: OBESITY SURGERY
     Route: 042
  2. SODIUM CHLORIDE. [Suspect]
     Active Substance: SODIUM CHLORIDE
     Indication: OBESITY SURGERY
     Route: 042
     Dates: start: 20150528, end: 20150528
  3. CALCIUMGLUCONATE [Suspect]
     Active Substance: CALCIUM GLUCONATE
     Indication: OBESITY SURGERY
     Route: 042
     Dates: start: 20150528, end: 20150528
  4. PHOSPHATE [Suspect]
     Active Substance: UNSPECIFIED INGREDIENT
     Indication: OBESITY SURGERY
     Route: 042
     Dates: start: 20150528, end: 20150528
  5. SMOFKABIVEN CENTRAL ELECTROLYT FREE [Suspect]
     Active Substance: ZINC SULFATE HEPTAHYDRATE
     Indication: OBESITY SURGERY
     Route: 042
     Dates: start: 20150528, end: 20150528
  6. MAGNESIUM SULFATE. [Suspect]
     Active Substance: MAGNESIUM SULFATE
     Indication: OBESITY SURGERY
     Route: 042
     Dates: start: 20150528, end: 20150528
  7. GLUCOSE 50% [Suspect]
     Active Substance: DEXTROSE
     Indication: OBESITY SURGERY
     Route: 042
     Dates: start: 20150528, end: 20150528
  8. WATER FOR INJECTIONS [Suspect]
     Active Substance: WATER
     Indication: OBESITY SURGERY
     Route: 042
     Dates: start: 20150528, end: 20150528
  9. AD ELEMENT [Suspect]
     Active Substance: UNSPECIFIED INGREDIENT
     Indication: OBESITY SURGERY
     Route: 042
     Dates: start: 20150528, end: 20150528
  10. POTASSIUM CHLORIDE 19.1% [Suspect]
     Active Substance: POTASSIUM CHLORIDE
     Indication: OBESITY SURGERY
     Route: 042
     Dates: start: 20150528, end: 20150528
  11. MULTIVITAMINES [Suspect]
     Active Substance: VITAMINS
     Indication: OBESITY SURGERY
     Route: 042
     Dates: start: 20150528, end: 20150528

REACTIONS (3)
  - Flushing [Recovered/Resolved]
  - Malaise [Recovered/Resolved]
  - Pruritus [Recovered/Resolved]

NARRATIVE: CASE EVENT DATE: 20150528
